FAERS Safety Report 4649390-5 (Version None)
Quarter: 2005Q2

REPORT INFORMATION
  Report Type: 
  Country: None (occurrence: None)
  Receive Date: 20050331
  Receipt Date: 20050119
  Transmission Date: 20051028
  Serious: No
  Sender: FDA-Public Use
  Company Number: 05P-163-0287229-00

PATIENT
  Age: 28 Year
  Sex: Female
  Weight: 43.0917 kg

DRUGS (7)
  1. HUMIRA [Suspect]
     Indication: RHEUMATOID ARTHRITIS
     Dosage: 40 MG, 1 IN 2 WK, SUBCUTANEOUS
     Route: 058
     Dates: start: 20050114
  2. CELECOXIB [Concomitant]
  3. METHOTREXATE SODIUM [Concomitant]
  4. ACTINEL [Concomitant]
  5. MULTI-VITAMINS [Concomitant]
  6. IRON [Concomitant]
  7. HYDROXYCHLOROQUINE PHOSPHATE [Concomitant]

REACTIONS (2)
  - ABDOMINAL PAIN UPPER [None]
  - MUSCLE SPASMS [None]
